FAERS Safety Report 6092936-3 (Version None)
Quarter: 2009Q1

REPORT INFORMATION
  Report Type: 
  Country: None (occurrence: None)
  Receive Date: 20090223
  Receipt Date: 20090205
  Transmission Date: 20090719
  Serious: Yes (Death, Congenital Anomaly)
  Sender: FDA-Public Use
  Company Number: 2009S1000058

PATIENT

DRUGS (1)
  1. SORIATANE [Suspect]
     Dosage: ; TRPL
     Route: 064

REACTIONS (2)
  - CONJOINED TWINS [None]
  - MATERNAL DRUGS AFFECTING FOETUS [None]
